FAERS Safety Report 16309776 (Version 1)
Quarter: 2019Q2

REPORT INFORMATION
  Report Type: Spontaneous
  Country: US (occurrence: US)
  Receive Date: 20190408
  Receipt Date: 20190408
  Transmission Date: 20190711
  Serious: No
  Sender: FDA-Public Use
  Company Number: None

PATIENT
  Age: 67 Year
  Sex: Female

DRUGS (8)
  1. OCALIVA [Suspect]
     Active Substance: OBETICHOLIC ACID
     Indication: PRIMARY BILIARY CHOLANGITIS
     Route: 048
     Dates: start: 20190215
  2. MULTIPLE VITAMIN [Concomitant]
     Active Substance: VITAMINS
  3. CHOLESTYRAM [Concomitant]
     Active Substance: CHOLESTYRAMINE
  4. OMEPRAZOLE. [Concomitant]
     Active Substance: OMEPRAZOLE
  5. PRALUENT [Concomitant]
     Active Substance: ALIROCUMAB
  6. UROSIDOL [Concomitant]
  7. HYDROCHLOROT [Concomitant]
     Active Substance: HYDROCHLOROTHIAZIDE
  8. ASPIRIN. [Concomitant]
     Active Substance: ASPIRIN

REACTIONS (5)
  - Discomfort [None]
  - Pain [None]
  - Pruritus [None]
  - Abdominal discomfort [None]
  - Arthralgia [None]

NARRATIVE: CASE EVENT DATE: 20190408
